FAERS Safety Report 10408534 (Version 1)
Quarter: 2014Q3

REPORT INFORMATION
  Report Type: Spontaneous
  Country: US (occurrence: None)
  Receive Date: 20140822
  Receipt Date: 20140822
  Transmission Date: 20150326
  Serious: No
  Sender: FDA-Public Use
  Company Number: None

PATIENT
  Age: 16 Year
  Sex: Female
  Weight: 54.43 kg

DRUGS (1)
  1. TOPAMAX [Suspect]
     Active Substance: TOPIRAMATE
     Dosage: 1 PILL  TWICE DAILY TAKEN BY MOUTH
     Route: 048
     Dates: start: 20140609, end: 20140811

REACTIONS (6)
  - Activities of daily living impaired [None]
  - Tinnitus [None]
  - Headache [None]
  - Paraesthesia [None]
  - Somnolence [None]
  - Confusional state [None]
